FAERS Safety Report 25666014 (Version 1)
Quarter: 2025Q3

REPORT INFORMATION
  Report Type: Spontaneous
  Country: US (occurrence: US)
  Receive Date: 20250811
  Receipt Date: 20250811
  Transmission Date: 20251021
  Serious: No
  Sender: BRISTOL-MYERS SQUIBB COMPANY
  Company Number: US-BRISTOL-MYERS SQUIBB COMPANY-2025-111030

PATIENT
  Age: 79 Year
  Sex: Female
  Weight: 45.36 kg

DRUGS (5)
  1. ELIQUIS [Suspect]
     Active Substance: APIXABAN
     Indication: Pulmonary embolism
     Route: 048
     Dates: start: 202409
  2. ELIQUIS [Suspect]
     Active Substance: APIXABAN
     Route: 048
  3. CALCIUM WITH D3 [Concomitant]
     Indication: Product used for unknown indication
  4. VITAMINS [Concomitant]
     Active Substance: VITAMINS
     Indication: Product used for unknown indication
  5. PEPCID [Concomitant]
     Active Substance: FAMOTIDINE
     Indication: Product used for unknown indication

REACTIONS (6)
  - Wrong technique in product usage process [Unknown]
  - Head injury [Recovering/Resolving]
  - Cognitive disorder [Unknown]
  - Headache [Unknown]
  - Vertigo [Unknown]
  - Fall [Recovering/Resolving]
